FAERS Safety Report 8746519 (Version 2)
Quarter: 2012Q4

REPORT INFORMATION
  Report Type: 
  Country: US (occurrence: US)
  Receive Date: 20120827
  Receipt Date: 20120927
  Transmission Date: 20130627
  Serious: Yes (Hospitalization)
  Sender: FDA-Public Use
  Company Number: US-ELI_LILLY_AND_COMPANY-US201208005286

PATIENT
  Sex: Female
  Weight: 83.9 kg

DRUGS (19)
  1. FORTEO [Suspect]
     Indication: OSTEOPOROSIS
     Dosage: 20 ug, qd
     Route: 058
     Dates: start: 20110404, end: 20120702
  2. FORTEO [Suspect]
     Dosage: 20 ug, qd
     Dates: start: 201104, end: 20120702
  3. FORTEO [Suspect]
     Dosage: UNK
     Dates: start: 20120711
  4. AMITRIPTYLINE [Concomitant]
     Dosage: UNK
  5. LISINOPRIL [Concomitant]
     Dosage: UNK
  6. INDAPAMIDE [Concomitant]
     Dosage: UNK
  7. LEVOTHYROXINE [Concomitant]
     Dosage: UNK
  8. JANUVIA [Concomitant]
     Dosage: UNK
  9. CRESTOR [Concomitant]
     Dosage: UNK
  10. BABY ASPIRIN [Concomitant]
     Dosage: UNK
  11. VITAMIN B12 [Concomitant]
     Dosage: UNK
  12. VITAMIN C [Concomitant]
     Dosage: UNK
  13. NIACIN [Concomitant]
     Dosage: UNK
  14. FISH OIL [Concomitant]
     Dosage: UNK
  15. CALCIUM [Concomitant]
     Dosage: UNK
  16. CRANBERRY [Concomitant]
     Dosage: UNK
  17. VITAMIN D [Concomitant]
     Dosage: UNK
  18. MAGNESIUM CITRATE [Concomitant]
     Dosage: UNK
  19. MULTIVITAMIN [Concomitant]
     Dosage: UNK

REACTIONS (2)
  - Arthritis [Recovered/Resolved]
  - Medication error [Recovered/Resolved]
